FAERS Safety Report 8501568-6 (Version None)
Quarter: 2012Q3

REPORT INFORMATION
  Report Type: 
  Country: None (occurrence: None)
  Receive Date: 20120710
  Receipt Date: 20120625
  Transmission Date: 20120928
  Serious: Yes (Death)
  Sender: FDA-Public Use
  Company Number: IT-WATSON-2012-11645

PATIENT
  Age: 25 Year
  Sex: Male

DRUGS (1)
  1. ANDRODERM [Suspect]
     Indication: DRUG ABUSE
     Dosage: UNK
     Route: 065

REACTIONS (3)
  - DRUG ABUSE [None]
  - EOSINOPHILIC MYOCARDITIS [None]
  - MULTI-ORGAN DISORDER [None]
